FAERS Safety Report 5465120-1 (Version None)
Quarter: 2007Q3

REPORT INFORMATION
  Report Type: 
  Country: None (occurrence: None)
  Receive Date: 20070820
  Receipt Date: 20070619
  Transmission Date: 20080115
  Serious: No
  Sender: FDA-Public Use
  Company Number: TPA2007A01431

PATIENT
  Age: 58 Year
  Sex: Female
  Weight: 63.5036 kg

DRUGS (7)
  1. ROZEREM [Suspect]
     Indication: INSOMNIA
     Dosage: PER ORAL
     Route: 048
  2. CALCIUM (CALCIUM) [Concomitant]
  3. IBANDRONATE SODIUM (IBANDRONATE SODIUM) [Concomitant]
  4. DICYCLOMINE [Concomitant]
  5. FOLIC ACID [Concomitant]
  6. METAMUCIL (PLANTAGO OVATA) [Concomitant]
  7. XANAX [Concomitant]

REACTIONS (1)
  - DRUG INEFFECTIVE [None]
